FAERS Safety Report 13395274 (Version 4)
Quarter: 2017Q2

REPORT INFORMATION
  Report Type: Spontaneous
  Country: US (occurrence: US)
  Receive Date: 20170403
  Receipt Date: 20170502
  Transmission Date: 20170830
  Serious: Yes (Other)
  Sender: FDA-Public Use
  Company Number: US-PFIZER INC-2017140018

PATIENT
  Age: 77 Year
  Sex: Female
  Weight: 72.56 kg

DRUGS (4)
  1. DISOPYRAMIDE PHOSPHATE. [Suspect]
     Active Substance: DISOPYRAMIDE PHOSPHATE
     Indication: CARDIAC DISORDER
     Dosage: 150 MG, 2X/DAY
  2. TRIAMTERENE AND HYDROCHLOROTHIAZID [Concomitant]
     Active Substance: HYDROCHLOROTHIAZIDE\TRIAMTERENE
     Dosage: 25 MG/37.5 MG
     Dates: start: 201512
  3. METOPROLOL SUCCINATE. [Concomitant]
     Active Substance: METOPROLOL SUCCINATE
     Dosage: 50 MG, 2X/DAY
     Dates: start: 201512
  4. DISOPYRAMIDE PHOSPHATE. [Suspect]
     Active Substance: DISOPYRAMIDE PHOSPHATE
     Dosage: 100 MG, 3X/DAY
     Dates: start: 201702, end: 201704

REACTIONS (5)
  - Gait disturbance [Not Recovered/Not Resolved]
  - Drug ineffective [Not Recovered/Not Resolved]
  - Angina pectoris [Not Recovered/Not Resolved]
  - Dyspnoea [Not Recovered/Not Resolved]
  - Feeling abnormal [Not Recovered/Not Resolved]

NARRATIVE: CASE EVENT DATE: 201511
